FAERS Safety Report 20688832 (Version 1)
Quarter: 2022Q2

REPORT INFORMATION
  Report Type: Spontaneous
  Country: US (occurrence: US)
  Receive Date: 20220408
  Receipt Date: 20220408
  Transmission Date: 20220721
  Serious: Yes (Other)
  Sender: FDA-Public Use
  Company Number: US-JNJFOC-20220407366

PATIENT
  Sex: Male

DRUGS (2)
  1. TYLENOL COLD PLUS FLU SEVERE DAY/NIGHT [Suspect]
     Active Substance: ACETAMINOPHEN\CHLORPHENIRAMINE MALEATE\DEXTROMETHORPHAN HYDROBROMIDE\GUAIFENESIN\PHENYLEPHRINE HYDRO
     Indication: Nasopharyngitis
     Dosage: ONE TABLET AT A TIME TWICE DAILY?TUESDAY (28-MAR-2022)
     Route: 065
     Dates: start: 20220328
  2. TYLENOL COLD PLUS FLU SEVERE DAY/NIGHT [Suspect]
     Active Substance: ACETAMINOPHEN\CHLORPHENIRAMINE MALEATE\DEXTROMETHORPHAN HYDROBROMIDE\GUAIFENESIN\PHENYLEPHRINE HYDRO
     Indication: Influenza

REACTIONS (1)
  - Urinary retention [Recovered/Resolved]

NARRATIVE: CASE EVENT DATE: 20220401
